FAERS Safety Report 10186532 (Version 1)
Quarter: 2014Q2

REPORT INFORMATION
  Report Type: Report from Study
  Country: US (occurrence: US)
  Receive Date: 20140521
  Receipt Date: 20140521
  Transmission Date: 20141212
  Serious: Yes (Hospitalization, Other)
  Sender: FDA-Public Use
  Company Number: PHHY2014US061603

PATIENT
  Age: 60 Year
  Sex: Male

DRUGS (20)
  1. LUCENTIS [Suspect]
     Indication: DIABETIC RETINAL OEDEMA
     Dosage: 0.5 MG, QMO
     Route: 031
     Dates: start: 20110503
  2. LUCENTIS [Suspect]
     Indication: DIABETIC RETINOPATHY
     Dosage: UNK UKN, UNK
     Route: 031
  3. LUCENTIS [Suspect]
     Indication: RETINAL VEIN OCCLUSION
     Dosage: UNK UKN, UNK
     Route: 031
  4. LUCENTIS [Suspect]
     Indication: RETINAL OEDEMA
     Dosage: UNK UKN, UNK
     Route: 031
  5. LUCENTIS [Suspect]
     Dosage: UNK UKN, UNK
     Route: 031
  6. LUCENTIS [Suspect]
     Dosage: UNK UKN, UNK
     Route: 031
  7. RANITIDINE [Suspect]
     Dosage: UNK UKN, UNK
  8. ACETAMINOPHEN [Concomitant]
     Dosage: 1 DF, Q6H
     Route: 048
  9. EXCEDRIN P.M. [Concomitant]
     Dosage: 1 DF, PRN (AT BEDTIME)
     Route: 048
  10. CLONIDINE [Concomitant]
     Dosage: 0.1 MG, BID
     Route: 048
  11. CLONIDINE [Concomitant]
     Dosage: 1 DF, Q4H (AS NEEDED) IF SBP} 180 AND SDP}100 (0.1 MG)
     Route: 048
  12. ZYRTEC [Concomitant]
     Dosage: UNK UKN, UNK
     Route: 048
  13. AMLODIPINE [Concomitant]
     Indication: HYPERTENSION
     Dosage: 0.5 DF, Q12H
     Route: 048
  14. INSULIN REGULAR HM [Concomitant]
     Dosage: 14 IU, 30 MINUTES BEFORE BREAKFAST
     Route: 058
  15. INSULIN REGULAR HM [Concomitant]
     Dosage: 9 IU, 30 MINUTES BEFORE DINNER
     Route: 058
  16. ISOPHANE INSULIN [Concomitant]
     Dosage: 22 IU, AM
     Route: 058
  17. ISOPHANE INSULIN [Concomitant]
     Dosage: 9 IU, QHS
     Route: 058
  18. BENADRYL [Concomitant]
     Dosage: 2 DF, Q6H (AS NEEDED)
     Route: 048
  19. EPIPEN [Concomitant]
     Dosage: UNK UKN, PRN
     Route: 030
  20. HYDROCODONE/ACETAMINOPHEN [Concomitant]
     Indication: PAIN
     Dosage: 1 DF, Q6H (AS NEEDED)
     Route: 048

REACTIONS (15)
  - Hypertensive crisis [Unknown]
  - Drug hypersensitivity [Unknown]
  - Presyncope [Unknown]
  - Hypoglycaemia [Unknown]
  - Vomiting [Unknown]
  - Blood pressure inadequately controlled [Unknown]
  - Malaise [Unknown]
  - Nephrolithiasis [Unknown]
  - Retinal vein occlusion [Unknown]
  - Retinal neovascularisation [Unknown]
  - Cystoid macular oedema [Unknown]
  - Metamorphopsia [Unknown]
  - Visual acuity reduced [Unknown]
  - Visual impairment [Unknown]
  - Paraesthesia [None]
